FAERS Safety Report 19850668 (Version 1)
Quarter: 2021Q3

REPORT INFORMATION
  Report Type: Spontaneous
  Country: IT (occurrence: IT)
  Receive Date: 20210917
  Receipt Date: 20210917
  Transmission Date: 20211014
  Serious: Yes (Life-Threatening)
  Sender: FDA-Public Use
  Company Number: NVSC2021IT201880

PATIENT
  Age: 69 Year
  Sex: Male
  Weight: 80 kg

DRUGS (1)
  1. ERELZI [Suspect]
     Active Substance: ETANERCEPT-SZZS
     Indication: RHEUMATOID ARTHRITIS
     Dosage: 50 MG, QW
     Route: 065
     Dates: start: 20210624, end: 20210624

REACTIONS (4)
  - Peritonitis [Recovered/Resolved with Sequelae]
  - Diverticular perforation [Recovered/Resolved with Sequelae]
  - Diverticulum intestinal [Recovered/Resolved with Sequelae]
  - Diverticulitis [Recovered/Resolved with Sequelae]
